FAERS Safety Report 4273741-7 (Version None)
Quarter: 2004Q1

REPORT INFORMATION
  Report Type: 
  Country: None (occurrence: None)
  Receive Date: 20040119
  Receipt Date: 20040113
  Transmission Date: 20041129
  Serious: Yes (Other)
  Sender: FDA-Public Use
  Company Number: PHBS2004JP00800

PATIENT
  Age: 48 Year
  Sex: Male

DRUGS (5)
  1. DIOVAN [Suspect]
     Dosage: 40 MG/DAY
     Route: 048
     Dates: start: 20031031
  2. HERBESSER ^TANABE^ [Concomitant]
     Route: 048
  3. VASOLAN [Concomitant]
     Route: 048
  4. CALVAN [Concomitant]
     Route: 048
  5. ADALAT [Concomitant]
     Route: 048

REACTIONS (2)
  - CONDITION AGGRAVATED [None]
  - DEPRESSION [None]
